FAERS Safety Report 12803301 (Version 1)
Quarter: 2016Q4

REPORT INFORMATION
  Report Type: Spontaneous
  Country: PL (occurrence: PL)
  Receive Date: 20161003
  Receipt Date: 20161003
  Transmission Date: 20170207
  Serious: Yes (Life-Threatening)
  Sender: FDA-Public Use
  Company Number: PHHY2016PL132229

PATIENT
  Sex: Male
  Weight: 85 kg

DRUGS (1)
  1. SUVARDIO [Suspect]
     Active Substance: ROSUVASTATIN CALCIUM
     Indication: PRODUCT USED FOR UNKNOWN INDICATION
     Dosage: 10 MG, QD, LAST ADMINISTRATION DATE:3 WEEKS EARLIER OF THE DATE OF COMPLETING THE FORM IE.27/04/2016
     Route: 048
     Dates: start: 201512

REACTIONS (1)
  - Dyspnoea [Recovered/Resolved]
